FAERS Safety Report 25808102 (Version 1)
Quarter: 2025Q3

REPORT INFORMATION
  Report Type: Spontaneous
  Country: US (occurrence: US)
  Receive Date: 20250916
  Receipt Date: 20250916
  Transmission Date: 20251020
  Serious: Yes (Hospitalization)
  Sender: MYLAN
  Company Number: US-MYLANLABS-2025M1077081

PATIENT
  Age: 19 Year
  Sex: Female

DRUGS (8)
  1. REMIFENTANIL [Suspect]
     Active Substance: REMIFENTANIL
     Indication: General anaesthesia
  2. FENTANYL [Suspect]
     Active Substance: FENTANYL
     Indication: General anaesthesia
  3. ROCURONIUM BROMIDE [Suspect]
     Active Substance: ROCURONIUM BROMIDE
     Indication: General anaesthesia
  4. LEVETIRACETAM [Suspect]
     Active Substance: LEVETIRACETAM
     Indication: Status epilepticus
  5. ESMOLOL [Suspect]
     Active Substance: ESMOLOL HYDROCHLORIDE
     Indication: Blood pressure management
  6. PROPOFOL [Suspect]
     Active Substance: PROPOFOL
     Indication: General anaesthesia
  7. NICARDIPINE [Suspect]
     Active Substance: NICARDIPINE
     Indication: Blood pressure management
  8. LORAZEPAM [Suspect]
     Active Substance: LORAZEPAM
     Indication: Status epilepticus

REACTIONS (3)
  - Drug ineffective [Unknown]
  - Maternal exposure during delivery [Recovered/Resolved]
  - Off label use [Unknown]
